FAERS Safety Report 7931256-6 (Version None)
Quarter: 2011Q4

REPORT INFORMATION
  Report Type: 
  Country: None (occurrence: None)
  Receive Date: 20111118
  Receipt Date: 20111118
  Transmission Date: 20120403
  Serious: No
  Sender: FDA-Public Use
  Company Number: None

PATIENT
  Age: 30 Year
  Sex: Female
  Weight: 92.9874 kg

DRUGS (1)
  1. PARAGARD LOT # 507005 [Suspect]
     Route: 015

REACTIONS (2)
  - DEVICE BREAKAGE [None]
  - DEVICE DISLOCATION [None]
